FAERS Safety Report 8476560-0 (Version None)
Quarter: 2012Q2

REPORT INFORMATION
  Report Type: 
  Country: None (occurrence: None)
  Receive Date: 20120628
  Receipt Date: 20120601
  Transmission Date: 20120825
  Serious: No
  Sender: FDA-Public Use
  Company Number: US-ASTRAZENECA-2012SE37155

PATIENT
  Age: 68 Year
  Sex: Female

DRUGS (17)
  1. LORATADINE [Concomitant]
  2. CLONIDINE [Concomitant]
  3. NIFEDIPINE [Concomitant]
  4. ZESTRIL [Suspect]
     Route: 048
  5. DOXEPIN [Concomitant]
     Dosage: 150 MG EVERY PM AT BEDTIME
  6. CRESTOR [Concomitant]
     Route: 048
  7. ANTI-GAS PILLS [Concomitant]
     Dosage: 1 AFTER EVERY MEAL AND AT BEDTIME
  8. LOSARTAN POTASSIUM [Concomitant]
  9. METOPROLOL TARTRATE [Concomitant]
     Dosage: 2 TIMES DAILY 1 AT 8 AM 1 AT 5 PM
     Route: 048
  10. DIAZEPAM [Concomitant]
  11. PLAVIX [Concomitant]
     Dosage: 37 0.5 MG 1 TAB AT PM MEAL
  12. FUROSEMIDE [Concomitant]
     Dosage: 2 TABS DAILY 1 AT 8 AM AND 1 AT 5 PM
  13. TRILEPTAL [Concomitant]
     Dosage: 150 MGS AM AT MEAL TIME - 150 MG AT BEDTIME
  14. LANTUS [Concomitant]
     Dosage: 65 UNITS EVERY PM AT 8 PM
  15. LEVOTHYROXINE [Concomitant]
  16. HYDROCHLOROTHIAZIDE [Concomitant]
     Dosage: 1 AT NOON DAILY
  17. NOVOLOG [Concomitant]
     Dosage: 4 TIMES A DAY - NO MORE THAN 105 UNITS PER DAY BEFORE MEALS AND AT BEDTIME

REACTIONS (1)
  - DRUG HYPERSENSITIVITY [None]
